FAERS Safety Report 18963300 (Version 1)
Quarter: 2021Q1

REPORT INFORMATION
  Report Type: Spontaneous
  Country: US (occurrence: US)
  Receive Date: 20210303
  Receipt Date: 20210303
  Transmission Date: 20210420
  Serious: Yes (Death, Other)
  Sender: FDA-Public Use
  Company Number: US-AMGEN-USASP2021031173

PATIENT

DRUGS (7)
  1. ARA?C [Concomitant]
     Active Substance: CYTARABINE
     Indication: MYELODYSPLASTIC SYNDROME
  2. IDARUBICIN [Concomitant]
     Active Substance: IDARUBICIN
     Indication: MYELODYSPLASTIC SYNDROME
  3. FLUDARABINE [Concomitant]
     Active Substance: FLUDARABINE PHOSPHATE
     Indication: MYELODYSPLASTIC SYNDROME
  4. IDARUBICIN [Concomitant]
     Active Substance: IDARUBICIN
     Indication: ACUTE MYELOID LEUKAEMIA
     Dosage: 12 MILLIGRAM/SQ. METER, QD, ON DAYS 2 TO 4
  5. ARA?C [Concomitant]
     Active Substance: CYTARABINE
     Indication: ACUTE MYELOID LEUKAEMIA
     Dosage: 2 GRAM PER SQUARE METRE, QD, DAYS 1 TO 4
  6. FILGRASTIM [Suspect]
     Active Substance: FILGRASTIM
     Indication: NEUTROPHIL COUNT DECREASED
     Dosage: 200 MICROGRAM/SQ. METER, QD
     Route: 065
  7. FLUDARABINE [Concomitant]
     Active Substance: FLUDARABINE PHOSPHATE
     Indication: ACUTE MYELOID LEUKAEMIA
     Dosage: 30 MILLIGRAM/SQ. METER, QD, ON DAYS 1 TO 4

REACTIONS (6)
  - Fungal infection [Unknown]
  - Therapeutic product effect incomplete [Unknown]
  - Recurrent cancer [Unknown]
  - Pneumonia [Unknown]
  - Death [Fatal]
  - Toxicity to various agents [Unknown]
